FAERS Safety Report 5650192-1 (Version None)
Quarter: 2008Q1

REPORT INFORMATION
  Report Type: 
  Country: None (occurrence: None)
  Receive Date: 20080225
  Receipt Date: 20080213
  Transmission Date: 20080703
  Serious: Yes (Hospitalization)
  Sender: FDA-Public Use
  Company Number: AECAN200800032

PATIENT
  Age: 54 Year
  Sex: Male

DRUGS (2)
  1. GAMUNEX [Suspect]
     Dosage: 35 GM;1X;IV
     Route: 042
     Dates: start: 20080131, end: 20080131
  2. VASOTEC [Concomitant]

REACTIONS (5)
  - CHILLS [None]
  - HYPOTENSION [None]
  - NAUSEA [None]
  - TACHYCARDIA [None]
  - VOMITING [None]
